FAERS Safety Report 4865894-4 (Version None)
Quarter: 2005Q4

REPORT INFORMATION
  Report Type: 
  Country: None (occurrence: None)
  Receive Date: 20051223
  Receipt Date: 20051221
  Transmission Date: 20060501
  Serious: Yes (Other)
  Sender: FDA-Public Use
  Company Number: PHNU2005DE04235

PATIENT
  Sex: Female

DRUGS (6)
  1. DIAZEPAM [Concomitant]
     Route: 065
  2. HALDOL [Concomitant]
     Route: 065
  3. SEROQUEL [Concomitant]
     Route: 065
  4. CLOZARIL [Suspect]
     Dosage: 400 MG/DAY
     Route: 048
  5. CLOZARIL [Suspect]
     Dosage: MORE THAN 400 MG/DAY
     Route: 048
  6. CLOZARIL [Suspect]
     Dosage: BETWEEN 25 TO 50 MG/DAY
     Route: 048

REACTIONS (3)
  - CONDITION AGGRAVATED [None]
  - DRUG LEVEL INCREASED [None]
  - HALLUCINATION, AUDITORY [None]
